FAERS Safety Report 11660450 (Version 1)
Quarter: 2015Q4

REPORT INFORMATION
  Report Type: Spontaneous
  Country: US (occurrence: None)
  Receive Date: 20151023
  Receipt Date: 20151023
  Transmission Date: 20160304
  Serious: No
  Sender: FDA-Public Use
  Company Number: None

PATIENT
  Age: 5 Year
  Weight: 24.68 kg

DRUGS (1)
  1. GUANFACINE 2MG ER [Suspect]
     Active Substance: GUANFACINE
     Indication: ATTENTION DEFICIT/HYPERACTIVITY DISORDER
     Route: 048
     Dates: start: 20150915

REACTIONS (4)
  - Feeling abnormal [None]
  - Somnolence [None]
  - Crying [None]
  - Staring [None]

NARRATIVE: CASE EVENT DATE: 20150915
